FAERS Safety Report 23782595 (Version 1)
Quarter: 2024Q2

REPORT INFORMATION
  Report Type: Spontaneous
  Country: US (occurrence: US)
  Receive Date: 20240425
  Receipt Date: 20240425
  Transmission Date: 20240716
  Serious: No
  Sender: FDA-Public Use
  Company Number: US-LUNDBECK-DKLU3076625

PATIENT
  Age: 51 Year
  Sex: Female

DRUGS (1)
  1. VYEPTI [Suspect]
     Active Substance: EPTINEZUMAB-JJMR
     Indication: Product used for unknown indication
     Route: 041
     Dates: start: 20240307

REACTIONS (6)
  - Visual impairment [Unknown]
  - Dyspnoea [Unknown]
  - Lethargy [Unknown]
  - Blood pressure increased [Unknown]
  - Hypersomnia [Unknown]
  - Fatigue [Recovered/Resolved]

NARRATIVE: CASE EVENT DATE: 20240307
